FAERS Safety Report 9122125 (Version 2)
Quarter: 2013Q1

REPORT INFORMATION
  Report Type: Spontaneous
  Country: US (occurrence: US)
  Receive Date: 20130227
  Receipt Date: 20130313
  Transmission Date: 20140127
  Serious: Yes (Death, Other)
  Sender: FDA-Public Use
  Company Number: PHEH2013US004643

PATIENT
  Age: 53 Year
  Sex: Male

DRUGS (1)
  1. AFINITOR [Suspect]
     Indication: RENAL CANCER
     Dosage: 10 MG, QD
     Route: 048

REACTIONS (3)
  - Renal cancer [Fatal]
  - Malignant neoplasm progression [Fatal]
  - Metastases to central nervous system [Unknown]
